FAERS Safety Report 20938347 (Version 1)
Quarter: 2022Q2

REPORT INFORMATION
  Report Type: Spontaneous
  Country: US (occurrence: None)
  Receive Date: 20220608
  Receipt Date: 20220608
  Transmission Date: 20220721
  Serious: Yes (unspecified)
  Sender: FDA-Public Use
  Company Number: None

PATIENT

DRUGS (1)
  1. CYANOCOBALAMIN [Suspect]
     Active Substance: CYANOCOBALAMIN

REACTIONS (2)
  - Drug level decreased [None]
  - Product measured potency issue [None]
